FAERS Safety Report 4750428-5 (Version None)
Quarter: 2005Q3

REPORT INFORMATION
  Report Type: 
  Country: None (occurrence: None)
  Receive Date: 20050819
  Receipt Date: 20050812
  Transmission Date: 20060218
  Serious: Yes (Life-Threatening, Hospitalization)
  Sender: FDA-Public Use
  Company Number: FRWYE903112AUG05

PATIENT
  Age: 53 Year
  Sex: Female

DRUGS (4)
  1. EFFEXOR [Suspect]
     Indication: BIPOLAR I DISORDER
     Dosage: 100 MG 1X PER 1 DAY, ORAL
     Route: 048
     Dates: start: 20050315, end: 20050320
  2. EFFEXOR [Suspect]
     Indication: BIPOLAR I DISORDER
     Dosage: 100 MG 1X PER 1 DAY, ORAL
     Route: 048
     Dates: start: 20050101, end: 20050415
  3. ASPIRIN [Suspect]
     Indication: ABDOMINAL PAIN
     Dosage: 2000 MG 1X PER 1 WK, ORAL
     Route: 048
     Dates: start: 20050320, end: 20050415
  4. ASPIRIN [Suspect]
     Indication: HEADACHE
     Dosage: 2000 MG 1X PER 1 WK, ORAL
     Route: 048
     Dates: start: 20050320, end: 20050415

REACTIONS (4)
  - APHASIA [None]
  - CEREBRAL HAEMATOMA [None]
  - DRUG INEFFECTIVE [None]
  - PERITONEAL HAEMORRHAGE [None]
